FAERS Safety Report 10524332 (Version 1)
Quarter: 2014Q4

REPORT INFORMATION
  Report Type: Spontaneous
  Country: US (occurrence: None)
  Receive Date: 20141015
  Receipt Date: 20141015
  Transmission Date: 20150528
  Serious: Yes (Other)
  Sender: FDA-Public Use
  Company Number: None

PATIENT
  Age: 35 Year
  Sex: Female
  Weight: 88.91 kg

DRUGS (1)
  1. PRAZOSIN [Suspect]
     Active Substance: PRAZOSIN
     Indication: NIGHTMARE
     Dosage: USED FOR ABOUT 2-3 MONTHS 1-8 MG ONCE A DAY

REACTIONS (5)
  - Nightmare [None]
  - Amenorrhoea [None]
  - Blood prolactin increased [None]
  - Condition aggravated [None]
  - Galactorrhoea [None]
